APPROVED DRUG PRODUCT: CEFTRIAXONE IN PLASTIC CONTAINER
Active Ingredient: CEFTRIAXONE SODIUM
Strength: EQ 40MG BASE/ML
Dosage Form/Route: INJECTABLE;INJECTION
Application: A065224 | Product #002
Applicant: BAXTER HEALTHCARE CORP
Approved: Aug 23, 2005 | RLD: No | RS: Yes | Type: RX